FAERS Safety Report 5009465-8 (Version None)
Quarter: 2006Q2

REPORT INFORMATION
  Report Type: 
  Country: None (occurrence: None)
  Receive Date: 20060522
  Receipt Date: 20060510
  Transmission Date: 20061013
  Serious: Yes (Hospitalization, Disabling)
  Sender: FDA-Public Use
  Company Number: HQWYE297611MAY06

PATIENT
  Age: 65 Year
  Sex: Female
  Weight: 62.2 kg

DRUGS (3)
  1. INDERAL [Suspect]
     Indication: HEADACHE
     Dosage: 20 MG 2X PER 1 DAY, ORAL; SEE IMAGE
     Route: 048
     Dates: end: 20050901
  2. INDERAL [Suspect]
     Indication: HEADACHE
     Dosage: 20 MG 2X PER 1 DAY, ORAL; SEE IMAGE
     Route: 048
     Dates: start: 20050901, end: 20060416
  3. INDERAL [Suspect]
     Indication: HEADACHE
     Dosage: 20 MG 2X PER 1 DAY, ORAL; SEE IMAGE
     Route: 048
     Dates: start: 20060401

REACTIONS (5)
  - ASTHENIA [None]
  - DIZZINESS [None]
  - DRY MOUTH [None]
  - FALL [None]
  - TREATMENT NONCOMPLIANCE [None]
